FAERS Safety Report 19715715 (Version 1)
Quarter: 2021Q3

REPORT INFORMATION
  Report Type: Spontaneous
  Country: CA (occurrence: CA)
  Receive Date: 20210818
  Receipt Date: 20210818
  Transmission Date: 20211014
  Serious: Yes (Other)
  Sender: FDA-Public Use
  Company Number: CA-DRREDDYS-USA/CAN/21/0136011

PATIENT
  Age: 59 Year
  Sex: Male
  Weight: 81 kg

DRUGS (2)
  1. ATORVASTATIN [Suspect]
     Active Substance: ATORVASTATIN
     Indication: TYPE IIA HYPERLIPIDAEMIA
     Route: 065
  2. EZETIMIBE. [Suspect]
     Active Substance: EZETIMIBE
     Indication: TYPE IIA HYPERLIPIDAEMIA
     Route: 065

REACTIONS (3)
  - Drug-induced liver injury [Recovered/Resolved]
  - Headache [Recovered/Resolved]
  - Myalgia [Recovered/Resolved]
